FAERS Safety Report 13002691 (Version 2)
Quarter: 2016Q4

REPORT INFORMATION
  Report Type: Spontaneous
  Country: HU (occurrence: HU)
  Receive Date: 20161206
  Receipt Date: 20161213
  Transmission Date: 20170207
  Serious: Yes (Other)
  Sender: FDA-Public Use
  Company Number: HU-PFIZER INC-2016562987

PATIENT
  Age: 71 Year
  Sex: Male

DRUGS (1)
  1. SUTENT [Suspect]
     Active Substance: SUNITINIB MALATE
     Indication: CLEAR CELL RENAL CELL CARCINOMA
     Dosage: 37.5 MG, DAILY, ACCORDING TO 2/1 SCHEMA
     Route: 048
     Dates: start: 20160728

REACTIONS (7)
  - Hypokalaemia [Unknown]
  - Gait disturbance [Unknown]
  - Eye swelling [Unknown]
  - Oedema [Recovering/Resolving]
  - Peripheral swelling [Unknown]
  - Muscular weakness [Unknown]
  - Lacrimation increased [Unknown]
